FAERS Safety Report 13582192 (Version 1)
Quarter: 2017Q2

REPORT INFORMATION
  Report Type: Spontaneous
  Country: FR (occurrence: FR)
  Receive Date: 20170525
  Receipt Date: 20170525
  Transmission Date: 20170830
  Serious: Yes (Hospitalization)
  Sender: FDA-Public Use
  Company Number: FR-SA-2017SA093448

PATIENT
  Age: 55 Year
  Sex: Female

DRUGS (26)
  1. CANCIDAS [Suspect]
     Active Substance: CASPOFUNGIN ACETATE
     Indication: INFECTION PROPHYLAXIS
     Route: 042
     Dates: start: 20170330, end: 20170413
  2. IMOVANE [Concomitant]
     Active Substance: ZOPICLONE
     Dates: start: 201703, end: 20170414
  3. PREDNISONE. [Concomitant]
     Active Substance: PREDNISONE
     Dates: start: 201704, end: 20170414
  4. CYTARABINE. [Concomitant]
     Active Substance: CYTARABINE
     Dates: start: 20170331, end: 20170403
  5. AMSACRINE [Concomitant]
     Active Substance: AMSACRINE
     Dates: start: 20170331, end: 20170403
  6. ACICLOVIR [Concomitant]
     Active Substance: ACYCLOVIR
     Dates: start: 201704, end: 20170414
  7. THYMOGLOBULIN [Suspect]
     Active Substance: LAPINE T-LYMPHOCYTE IMMUNE GLOBULIN
     Route: 042
     Dates: start: 20170411, end: 20170412
  8. THEALOZ [Concomitant]
     Dates: start: 201703
  9. BUSILVEX [Suspect]
     Active Substance: BUSULFAN
     Indication: ACUTE MYELOID LEUKAEMIA
     Route: 042
     Dates: start: 20170410, end: 20170411
  10. HEPARIN [Concomitant]
     Active Substance: HEPARIN SODIUM
     Dates: start: 201704
  11. BETNEVAL [Concomitant]
     Active Substance: BETAMETHASONE VALERATE
     Dates: start: 201704
  12. URSODEOXYCHOLIC ACID [Concomitant]
     Active Substance: URSODIOL
     Dates: start: 201704
  13. HEPARIN [Concomitant]
     Active Substance: HEPARIN SODIUM
     Dates: start: 201703
  14. VITABACT [Concomitant]
     Active Substance: PICLOXYDINE DIHYDROCHLORIDE
     Dates: start: 201703
  15. ORBENINE [Concomitant]
     Active Substance: CLOXACILLIN SODIUM
     Dates: start: 20170322, end: 20170408
  16. GLYCEROL\PARAFFIN [Concomitant]
     Active Substance: GLYCERIN\PARAFFIN
     Dates: start: 201704
  17. VALACICLOVIR [Concomitant]
     Active Substance: VALACYCLOVIR HYDROCHLORIDE
     Dates: start: 201703
  18. ATARAX [Concomitant]
     Active Substance: HYDROXYZINE HYDROCHLORIDE
     Dates: start: 201704
  19. FLUDARABINE [Concomitant]
     Active Substance: FLUDARABINE PHOSPHATE
     Dates: start: 20170331, end: 20170403
  20. MELPHALAN. [Concomitant]
     Active Substance: MELPHALAN
     Dates: start: 20170407
  21. ONDANSETRON [Concomitant]
     Active Substance: ONDANSETRON
     Dates: start: 201704
  22. BUSILVEX [Suspect]
     Active Substance: BUSULFAN
     Indication: ACUTE MYELOID LEUKAEMIA
     Route: 042
     Dates: start: 20170410, end: 20170411
  23. TAZOBACTAM/PIPERACILLIN [Suspect]
     Active Substance: PIPERACILLIN SODIUM\TAZOBACTAM SODIUM
     Indication: INFECTION
     Route: 042
     Dates: start: 20170408, end: 20170413
  24. WELLVONE [Concomitant]
     Active Substance: ATOVAQUONE
     Dates: start: 201703, end: 20170414
  25. SEROPLEX [Concomitant]
     Active Substance: ESCITALOPRAM OXALATE
     Dates: start: 201703, end: 20170414
  26. AMIKACIN [Concomitant]
     Active Substance: AMIKACIN
     Dates: start: 201704

REACTIONS (1)
  - Dermatitis bullous [Recovered/Resolved]

NARRATIVE: CASE EVENT DATE: 20170413
